FAERS Safety Report 8554516-7 (Version None)
Quarter: 2012Q3

REPORT INFORMATION
  Report Type: 
  Country: None (occurrence: None)
  Receive Date: 20120731
  Receipt Date: 20120724
  Transmission Date: 20120928
  Serious: No
  Sender: FDA-Public Use
  Company Number: US-PFIZER INC-2012179182

PATIENT
  Sex: Female
  Weight: 76 kg

DRUGS (14)
  1. SOMAVERT [Suspect]
     Indication: ACROMEGALY
     Dosage: 20 MG, 1X/DAY
     Route: 058
  2. SOMAVERT [Suspect]
     Dosage: 10 MG, 1X/DAY
     Route: 058
  3. VITAMIN E [Concomitant]
     Dosage: UNK
  4. SANDOSTATIN LAR [Concomitant]
     Dosage: UNK
  5. EXTRA STRENGTH TYLENOL [Concomitant]
     Dosage: UNK, AS NEEDED
  6. DIOVAN HCT [Concomitant]
     Indication: HYPERTENSION
     Dosage: UNK
  7. KLOR-CON M20 [Concomitant]
     Dosage: UNK
  8. NOVOLOG [Concomitant]
     Dosage: UNK
  9. SYNTHROID [Concomitant]
     Dosage: UNK
  10. FUROSEMIDE [Concomitant]
     Dosage: UNK
  11. FERROUS SULFATE TAB [Concomitant]
     Dosage: UNK
  12. LEVEMIR [Concomitant]
     Dosage: UNK
  13. METOCLOPRAMIDE [Concomitant]
     Dosage: UNK
  14. MULTI-VITAMINS [Concomitant]
     Dosage: UNK, AS NEEDED

REACTIONS (2)
  - INSULIN-LIKE GROWTH FACTOR DECREASED [None]
  - INJECTION SITE PAIN [None]
